FAERS Safety Report 25554315 (Version 1)
Quarter: 2025Q3

REPORT INFORMATION
  Report Type: Spontaneous
  Country: US (occurrence: None)
  Receive Date: 20250714
  Receipt Date: 20250714
  Transmission Date: 20251021
  Serious: Yes (Hospitalization)
  Sender: FDA-CTU
  Company Number: None

PATIENT
  Age: 66 Year
  Sex: Male

DRUGS (12)
  1. HUMIRA [Suspect]
     Active Substance: ADALIMUMAB
     Indication: Psoriatic arthropathy
     Dates: start: 20200221
  2. GENVOYA [Suspect]
     Active Substance: COBICISTAT\ELVITEGRAVIR\EMTRICITABINE\TENOFOVIR ALAFENAMIDE FUMARATE
     Dosage: OTHER QUANTITY : 150/150/200MG;?FREQUENCY : DAILY;?
     Route: 048
     Dates: start: 20191116
  3. niacinaminde [Concomitant]
  4. FOLIC ACID [Concomitant]
     Active Substance: FOLIC ACID
  5. METHOTREXATE [Concomitant]
     Active Substance: METHOTREXATE
  6. BACTRIM [Concomitant]
     Active Substance: SULFAMETHOXAZOLE\TRIMETHOPRIM
  7. FLUCONAZOLE [Concomitant]
     Active Substance: FLUCONAZOLE
  8. PANTOPRAZOLE [Concomitant]
     Active Substance: PANTOPRAZOLE
  9. GAVILYTE?C SOLUTION [Concomitant]
  10. CALCIUM CARBONATE [Concomitant]
     Active Substance: CALCIUM CARBONATE
  11. OXYCODONE [Concomitant]
     Active Substance: OXYCODONE
  12. ALBUTEROL HFA INH [Concomitant]

REACTIONS (3)
  - Pneumonia [None]
  - Coccidioidomycosis [None]
  - Immunodeficiency [None]

NARRATIVE: CASE EVENT DATE: 20250601
